FAERS Safety Report 4634459-1 (Version None)
Quarter: 2005Q2

REPORT INFORMATION
  Report Type: 
  Country: None (occurrence: None)
  Receive Date: 20050412
  Receipt Date: 20050331
  Transmission Date: 20051028
  Serious: Yes (Death)
  Sender: FDA-Public Use
  Company Number: HQWYE687605APR05

PATIENT
  Sex: Male

DRUGS (2)
  1. OMEGACIN (BIAPENEM, INJECTION) [Suspect]
     Dosage: 0.6 GRAMS PER DAY INTRAVENOUS DRIP
     Route: 041
     Dates: start: 20050215, end: 20050228
  2. PIPERACILLIN [Suspect]
     Indication: GASTRIC CANCER

REACTIONS (6)
  - C-REACTIVE PROTEIN INCREASED [None]
  - PHARYNGITIS [None]
  - PNEUMONIA [None]
  - SPUTUM CULTURE POSITIVE [None]
  - STAPHYLOCOCCAL INFECTION [None]
  - SUPERINFECTION [None]
